FAERS Safety Report 11610432 (Version 1)
Quarter: 2015Q4

REPORT INFORMATION
  Report Type: Spontaneous
  Country: SE (occurrence: SE)
  Receive Date: 20151008
  Receipt Date: 20151008
  Transmission Date: 20160304
  Serious: Yes (Other)
  Sender: FDA-Public Use
  Company Number: SE-ROCHE-1639530

PATIENT
  Sex: Female

DRUGS (1)
  1. XENICAL [Suspect]
     Active Substance: ORLISTAT
     Indication: PRODUCT USED FOR UNKNOWN INDICATION
     Route: 065
     Dates: start: 1999, end: 1999

REACTIONS (18)
  - Erythema [Unknown]
  - Palpitations [Unknown]
  - Eyelid oedema [Unknown]
  - Feeling cold [Unknown]
  - Erythema multiforme [Unknown]
  - Rash erythematous [Unknown]
  - Cold sweat [Unknown]
  - Hyperhidrosis [Unknown]
  - Hypertension [Unknown]
  - Eczema [Unknown]
  - Pyrexia [Unknown]
  - Oedema [Unknown]
  - Pruritus generalised [Unknown]
  - Urticaria chronic [Unknown]
  - Flushing [Unknown]
  - Swelling [Unknown]
  - Burning sensation [Unknown]
  - Hypersensitivity [Unknown]

NARRATIVE: CASE EVENT DATE: 1999
